FAERS Safety Report 8496551-3 (Version None)
Quarter: 2012Q3

REPORT INFORMATION
  Report Type: 
  Country: None (occurrence: None)
  Receive Date: 20120709
  Receipt Date: 20120704
  Transmission Date: 20120928
  Serious: Yes (Death)
  Sender: FDA-Public Use
  Company Number: CH-ELI_LILLY_AND_COMPANY-CH201207001967

PATIENT
  Sex: Male
  Weight: 82 kg

DRUGS (2)
  1. EFFIENT [Suspect]
     Dosage: 10 MG, QD
     Dates: start: 20110406
  2. EFFIENT [Suspect]
     Indication: ACUTE CORONARY SYNDROME
     Dosage: 60 MG, QD
     Route: 048
     Dates: start: 20110405, end: 20110405

REACTIONS (1)
  - DEATH [None]
